FAERS Safety Report 19020416 (Version 3)
Quarter: 2021Q2

REPORT INFORMATION
  Report Type: Report from Study
  Country: US (occurrence: US)
  Receive Date: 20210317
  Receipt Date: 20210408
  Transmission Date: 20210717
  Serious: Yes (Hospitalization, Other)
  Sender: FDA-Public Use
  Company Number: US-BAYER-2021-104536

PATIENT
  Age: 73 Year
  Sex: Female
  Weight: 104.31 kg

DRUGS (3)
  1. ADEMPAS [Suspect]
     Active Substance: RIOCIGUAT
     Indication: PULMONARY ARTERIAL HYPERTENSION
     Dosage: 2 MG, TID
     Route: 048
  2. ADEMPAS [Suspect]
     Active Substance: RIOCIGUAT
     Indication: PULMONARY ARTERIAL HYPERTENSION
     Dosage: UNK
     Dates: start: 20201029
  3. ADEMPAS [Suspect]
     Active Substance: RIOCIGUAT
     Indication: PULMONARY ARTERIAL HYPERTENSION
     Dosage: 2.5 MG, TID
     Route: 048

REACTIONS (8)
  - Generalised oedema [None]
  - Localised oedema [None]
  - Fluid overload [None]
  - Generalised oedema [None]
  - Oedema peripheral [None]
  - Oedema [None]
  - Peripheral swelling [None]
  - Fluid overload [None]

NARRATIVE: CASE EVENT DATE: 20210305
